FAERS Safety Report 8322657-5 (Version None)
Quarter: 2012Q2

REPORT INFORMATION
  Report Type: 
  Country: None (occurrence: None)
  Receive Date: 20120430
  Receipt Date: 20120423
  Transmission Date: 20120825
  Serious: Yes (Life-Threatening, Hospitalization)
  Sender: FDA-Public Use
  Company Number: JP-MERCK-1003USA02991

PATIENT
  Age: 58 Year
  Sex: Female
  Weight: 60 kg

DRUGS (7)
  1. JANUVIA [Suspect]
     Route: 048
  2. CANDESARTAN CILEXETIL [Concomitant]
     Route: 048
  3. AMLODIPINE [Concomitant]
     Route: 048
  4. AMARYL [Concomitant]
     Route: 048
     Dates: start: 20100225, end: 20100312
  5. ACTOS [Concomitant]
     Route: 048
  6. METFORMIN HCL [Concomitant]
     Route: 048
  7. JANUVIA [Suspect]
     Indication: DIABETES MELLITUS
     Route: 048
     Dates: start: 20100225, end: 20100312

REACTIONS (5)
  - HYPERTHERMIA [None]
  - RHEUMATOID ARTHRITIS [None]
  - SEPSIS [None]
  - DECREASED APPETITE [None]
  - PYELONEPHRITIS [None]
